FAERS Safety Report 6366613-5 (Version None)
Quarter: 2009Q3

REPORT INFORMATION
  Report Type: 
  Country: None (occurrence: None)
  Receive Date: 20090921
  Receipt Date: 20090910
  Transmission Date: 20100115
  Serious: Yes (Other)
  Sender: FDA-Public Use
  Company Number: PHHY2009GB39012

PATIENT
  Sex: Male

DRUGS (3)
  1. EXELON [Suspect]
     Dosage: 4.6 MG
     Route: 062
  2. EXELON [Suspect]
     Dosage: 9.6 MG
     Route: 062
  3. MIRTAZAPINE [Concomitant]
     Dosage: 30 MG, UNK

REACTIONS (2)
  - AGGRESSION [None]
  - AGITATION [None]
